FAERS Safety Report 7333046-4 (Version None)
Quarter: 2011Q1

REPORT INFORMATION
  Report Type: 
  Country: None (occurrence: None)
  Receive Date: 20110304
  Receipt Date: 20110228
  Transmission Date: 20110831
  Serious: Yes (Other)
  Sender: FDA-Public Use
  Company Number: US-PFIZER INC-2011044099

PATIENT
  Sex: Female

DRUGS (1)
  1. PREMPRO [Suspect]
     Indication: HOT FLUSH

REACTIONS (5)
  - VAGINAL HAEMORRHAGE [None]
  - CONDITION AGGRAVATED [None]
  - BREAST TENDERNESS [None]
  - FLUID RETENTION [None]
  - MOOD SWINGS [None]
